FAERS Safety Report 19645515 (Version 1)
Quarter: 2021Q3

REPORT INFORMATION
  Report Type: Spontaneous
  Country: US (occurrence: US)
  Receive Date: 20210730
  Receipt Date: 20210730
  Transmission Date: 20211014
  Serious: No
  Sender: FDA-Public Use
  Company Number: None

PATIENT
  Age: 90 Year
  Sex: Female
  Weight: 52.6 kg

DRUGS (1)
  1. DOXYCYCLINE. [Suspect]
     Active Substance: DOXYCYCLINE
     Indication: PNEUMONIA
     Route: 042
     Dates: start: 20210730, end: 20210730

REACTIONS (1)
  - Infusion site pain [None]

NARRATIVE: CASE EVENT DATE: 20210730
